FAERS Safety Report 17241429 (Version 2)
Quarter: 2020Q4

REPORT INFORMATION
  Report Type: Report from Study
  Country: CA (occurrence: CA)
  Receive Date: 20200107
  Receipt Date: 20201109
  Transmission Date: 20210113
  Serious: No
  Sender: FDA-Public Use
  Company Number: CA-BEH-2019099580

PATIENT
  Sex: Male

DRUGS (2)
  1. HIZENTRA [Suspect]
     Active Substance: HUMAN IMMUNOGLOBULIN G
     Indication: SECONDARY IMMUNODEFICIENCY
     Dosage: 8 G, QW
     Route: 058
     Dates: end: 201909
  2. HIZENTRA [Suspect]
     Active Substance: HUMAN IMMUNOGLOBULIN G
     Indication: CHRONIC LYMPHOCYTIC LEUKAEMIA
     Dosage: 6 GRAM, QOW
     Route: 058

REACTIONS (8)
  - Injection site erythema [Recovered/Resolved]
  - Injection site rash [Recovered/Resolved]
  - Rash pruritic [Recovered/Resolved]
  - Infusion site pruritus [Recovered/Resolved]
  - Injection site mass [Recovered/Resolved]
  - Infusion site rash [Recovered/Resolved with Sequelae]
  - Treatment noncompliance [Unknown]
  - No adverse event [Unknown]

NARRATIVE: CASE EVENT DATE: 201902
